FAERS Safety Report 8974280 (Version 6)
Quarter: 2014Q2

REPORT INFORMATION
  Report Type: Spontaneous
  Country: US (occurrence: None)
  Receive Date: 20121212
  Receipt Date: 20140630
  Transmission Date: 20141212
  Serious: Yes (Hospitalization)
  Sender: FDA-Public Use
  Company Number: AUR-APL-2012-05246

PATIENT
  Age: 78 Year
  Sex: Female
  Weight: 56.2 kg

DRUGS (13)
  1. AMLODIPINE 5 MG (AMLODIPINE) UNKNOWN, 5MG [Suspect]
     Indication: HYPERTENSION
     Dosage: 5 MG, ONCE A DAY, ORAL
     Route: 048
     Dates: start: 20121114, end: 20121121
  2. LISINOPRIL [Suspect]
     Indication: HYPERTENSION
     Dosage: 10 MG, TWO TIMES A DAY, ORAL
     Route: 048
     Dates: end: 20121024
  3. METOPROLOL [Suspect]
     Indication: HYPERTENSION
     Dosage: 25 MG, TWO TIMES A DAY, ORAL
     Route: 048
     Dates: end: 20121024
  4. ARICEPT (DONEPEZIL) [Suspect]
     Indication: DEMENTIA ALZHEIMER^S TYPE
     Dosage: 10 MG, ONCE A DAY, ORAL
     Route: 048
     Dates: start: 20070605, end: 20121121
  5. PREDNISOLONE ACETATE (PREDNISOLONE ACETATE) [Concomitant]
  6. ALBUTEROL (SALBUTAMOL) [Concomitant]
  7. ALENDRONATE SODIUM (ALENDRONATE SODIUM) (ALENDRONATE SODIUM) [Concomitant]
  8. BROMDAY (BROMFENAC) [Concomitant]
  9. SIMVASTATIN (SIMVASTATIN) [Concomitant]
  10. VIGAMOX (MOXIFLOXACIN HYDROCHLORIDE) [Concomitant]
  11. SINEMET (SINEMET) [Concomitant]
  12. CALTRATE (CALCIUM CARBONATE) [Concomitant]
  13. FLOVENT (FLUTICASONE PROPIONATE) [Concomitant]

REACTIONS (9)
  - Syncope [None]
  - Bradycardia [None]
  - Viral upper respiratory tract infection [None]
  - Nausea [None]
  - Pallor [None]
  - Nasopharyngitis [None]
  - Loss of consciousness [None]
  - Vomiting [None]
  - Ankle fracture [None]
